FAERS Safety Report 13565278 (Version 2)
Quarter: 2017Q2

REPORT INFORMATION
  Report Type: Spontaneous
  Country: US (occurrence: US)
  Receive Date: 20170519
  Receipt Date: 20170621
  Transmission Date: 20170830
  Serious: Yes (Other)
  Sender: FDA-Public Use
  Company Number: US-BRISTOL-MYERS SQUIBB COMPANY-BMS-2017-043733

PATIENT
  Age: 44 Year

DRUGS (1)
  1. ABILIFY [Suspect]
     Active Substance: ARIPIPRAZOLE
     Indication: MAJOR DEPRESSION
     Dosage: 1 DF, UNK
     Route: 065
     Dates: start: 20120321, end: 201512

REACTIONS (6)
  - Mental disorder [Unknown]
  - Suicidal ideation [Recovered/Resolved]
  - Emotional distress [Unknown]
  - Suicide attempt [Recovered/Resolved]
  - Gambling disorder [Unknown]
  - Hyperphagia [Recovered/Resolved]
